FAERS Safety Report 9225340 (Version 1)
Quarter: 2013Q1

REPORT INFORMATION
  Report Type: Spontaneous
  Country: US (occurrence: None)
  Receive Date: 20121001
  Receipt Date: 20121001
  Transmission Date: 20140127
  Serious: Yes (Hospitalization)
  Sender: FDA-Public Use
  Company Number: GXBR2012US001689

PATIENT
  Age: 52 Year
  Sex: Female

DRUGS (1)
  1. ANECTINE [Suspect]
     Indication: ETHMOID SINUS SURGERY
     Dates: start: 20120718, end: 20120718

REACTIONS (1)
  - Myalgia [None]
